FAERS Safety Report 12071295 (Version 2)
Quarter: 2016Q3

REPORT INFORMATION
  Report Type: Report from Study
  Country: CA (occurrence: CA)
  Receive Date: 20160211
  Receipt Date: 20160815
  Transmission Date: 20161109
  Serious: Yes (Life-Threatening, Hospitalization, Other)
  Sender: FDA-Public Use
  Company Number: CA-GILEAD-2016-0194729

PATIENT
  Age: 59 Year
  Sex: Male
  Weight: 87 kg

DRUGS (12)
  1. LEDIPASVIR/SOFOSBUVIR [Suspect]
     Active Substance: LEDIPASVIR\SOFOSBUVIR
     Indication: CHRONIC HEPATITIS C
     Dosage: 1 DF, UNK
     Route: 048
     Dates: start: 20160109, end: 20160114
  2. CITALOPRAM [Interacting]
     Active Substance: CITALOPRAM HYDROBROMIDE
     Indication: PRODUCT USED FOR UNKNOWN INDICATION
     Dosage: 40 MG, QD
     Route: 048
  3. VITAMIN D                          /00107901/ [Concomitant]
     Active Substance: ERGOCALCIFEROL
  4. CALCIUM [Concomitant]
     Active Substance: CALCIUM
  5. FUROSEMIDE. [Concomitant]
     Active Substance: FUROSEMIDE
  6. ARIPIPRAZOLE. [Interacting]
     Active Substance: ARIPIPRAZOLE
     Indication: PRODUCT USED FOR UNKNOWN INDICATION
     Dosage: 2 MG, QD
     Route: 065
  7. SIROLIMUS. [Concomitant]
     Active Substance: SIROLIMUS
  8. SPIRONOLACTONE. [Concomitant]
     Active Substance: SPIRONOLACTONE
  9. IRON [Concomitant]
     Active Substance: IRON
  10. NADOLOL. [Concomitant]
     Active Substance: NADOLOL
  11. MAGNESIUM [Concomitant]
     Active Substance: MAGNESIUM
  12. CLONIDINE. [Concomitant]
     Active Substance: CLONIDINE

REACTIONS (17)
  - Agitation [Recovered/Resolved]
  - Drug interaction [Unknown]
  - Depressed level of consciousness [Recovered/Resolved]
  - Respiratory failure [Recovered/Resolved]
  - Encephalopathy [Unknown]
  - Mood swings [Unknown]
  - Drug interaction [Unknown]
  - Hepatic failure [Unknown]
  - Blood creatinine increased [Recovered/Resolved]
  - Ammonia increased [Unknown]
  - Pneumonia [Unknown]
  - Blood lactic acid increased [Unknown]
  - Muscle rigidity [Unknown]
  - Blood creatine phosphokinase increased [Recovering/Resolving]
  - Fatigue [Unknown]
  - Confusional state [Recovering/Resolving]
  - Pyrexia [Unknown]

NARRATIVE: CASE EVENT DATE: 201601
